FAERS Safety Report 9179238 (Version 6)
Quarter: 2015Q1

REPORT INFORMATION
  Report Type: Spontaneous
  Country: JP (occurrence: JP)
  Receive Date: 20130321
  Receipt Date: 20150129
  Transmission Date: 20150721
  Serious: Yes (Hospitalization, Other)
  Sender: FDA-Public Use
  Company Number: JP-GLAXOSMITHKLINE-B0871578A

PATIENT
  Age: 83 Year
  Sex: Male
  Weight: 60 kg

DRUGS (7)
  1. PURSENNID [Concomitant]
     Active Substance: SENNOSIDES A AND B
     Route: 048
  2. ADALAT CC [Concomitant]
     Active Substance: NIFEDIPINE
     Indication: HYPERTENSION
     Route: 048
  3. EVIPROSTAT [Concomitant]
     Active Substance: CHIMAPHILA UMBELLATA\MANGANESE CHLORIDE\POPULUS TREMULOIDES\SODIUM TAUROCHOLATE
     Route: 048
  4. MICARDIS [Concomitant]
     Active Substance: TELMISARTAN
     Indication: HYPERTENSION
     Route: 048
  5. VALACICLOVIR HYDROCHLORIDE [Suspect]
     Active Substance: VALACYCLOVIR HYDROCHLORIDE
     Indication: HERPES ZOSTER
     Route: 048
     Dates: start: 20130220, end: 20130225
  6. CHINESE MEDICINE [Concomitant]
     Active Substance: UNSPECIFIED INGREDIENT
     Route: 048
  7. AMARYL [Concomitant]
     Active Substance: GLIMEPIRIDE
     Indication: TYPE 2 DIABETES MELLITUS
     Route: 048

REACTIONS (10)
  - Poriomania [Unknown]
  - Toxicity to various agents [Unknown]
  - Toxic encephalopathy [Recovering/Resolving]
  - Altered state of consciousness [Recovering/Resolving]
  - Dyslalia [Unknown]
  - Decreased appetite [Unknown]
  - Acute kidney injury [Recovered/Resolved]
  - Renal disorder [Recovered/Resolved]
  - Dysarthria [Unknown]
  - Soliloquy [Unknown]

NARRATIVE: CASE EVENT DATE: 201302
